FAERS Safety Report 6135205-5 (Version None)
Quarter: 2009Q1

REPORT INFORMATION
  Report Type: 
  Country: None (occurrence: None)
  Receive Date: 20090325
  Receipt Date: 20090308
  Transmission Date: 20090719
  Serious: Yes (Hospitalization, Other)
  Sender: FDA-Public Use
  Company Number: 2006S1003741

PATIENT
  Age: 55 Year
  Sex: Male
  Weight: 89.8122 kg

DRUGS (5)
  1. PHOSPHOSODA UNFLAVORED [Suspect]
     Indication: SIGMOIDOSCOPY
     Dosage: 90 ML;X1;PO
     Route: 048
     Dates: start: 20040120, end: 20040120
  2. HYDROCHLOROTHIAZIDE [Concomitant]
  3. LOVASTATIN [Concomitant]
  4. VIAGRA [Concomitant]
  5. CYCLOBENZAPRINE [Concomitant]

REACTIONS (4)
  - ANAEMIA [None]
  - OVERDOSE [None]
  - RENAL FAILURE ACUTE [None]
  - TUBULOINTERSTITIAL NEPHRITIS [None]
